FAERS Safety Report 4636842-7 (Version None)
Quarter: 2005Q2

REPORT INFORMATION
  Report Type: 
  Country: None (occurrence: None)
  Receive Date: 20050414
  Receipt Date: 20050407
  Transmission Date: 20051028
  Serious: Yes (Life-Threatening, Hospitalization)
  Sender: FDA-Public Use
  Company Number: 2005SE02093

PATIENT
  Age: 32 Year
  Sex: Male
  Weight: 80 kg

DRUGS (3)
  1. SEROQUEL [Suspect]
     Dosage: 200 MG ONCE PO
     Route: 048
     Dates: start: 20050301, end: 20050301
  2. FLUPIDOL [Concomitant]
  3. AKINETON [Concomitant]

REACTIONS (1)
  - ANAPHYLACTIC SHOCK [None]
